FAERS Safety Report 6004644-5 (Version None)
Quarter: 2008Q4

REPORT INFORMATION
  Report Type: 
  Country: None (occurrence: None)
  Receive Date: 20081216
  Receipt Date: 20081209
  Transmission Date: 20090506
  Serious: Yes (Disabling)
  Sender: FDA-Public Use
  Company Number: DE-PURDUE-DEU_2008_0004824

PATIENT
  Age: 40 Year
  Sex: Female
  Weight: 53 kg

DRUGS (2)
  1. PALLADONE [Suspect]
     Indication: PAIN
     Dosage: 4 MG, QID
     Route: 048
     Dates: start: 20050101
  2. MYDOCALM                           /00293001/ [Concomitant]

REACTIONS (4)
  - ANXIETY [None]
  - APHASIA [None]
  - HALLUCINATION, AUDITORY [None]
  - HALLUCINATION, VISUAL [None]
